FAERS Safety Report 11443249 (Version 5)
Quarter: 2015Q4

REPORT INFORMATION
  Report Type: Spontaneous
  Country: US (occurrence: US)
  Receive Date: 20150901
  Receipt Date: 20151124
  Transmission Date: 20160304
  Serious: Yes (Hospitalization, Other)
  Sender: FDA-Public Use
  Company Number: US-GLAXOSMITHKLINE-US2015GSK123869

PATIENT
  Age: 72 Year
  Sex: Male

DRUGS (1)
  1. TANZEUM [Suspect]
     Active Substance: ALBIGLUTIDE
     Indication: TYPE 1 DIABETES MELLITUS
     Dosage: 30 MG, WE
     Route: 042
     Dates: start: 201412

REACTIONS (6)
  - Malaise [Unknown]
  - Ill-defined disorder [Unknown]
  - Product quality issue [Unknown]
  - Vomiting [Unknown]
  - Blood glucose increased [Unknown]
  - Accidental exposure to product [Unknown]

NARRATIVE: CASE EVENT DATE: 2015
